FAERS Safety Report 7901950-1 (Version None)
Quarter: 2011Q4

REPORT INFORMATION
  Report Type: 
  Country: None (occurrence: None)
  Receive Date: 20111108
  Receipt Date: 20111030
  Transmission Date: 20120403
  Serious: Yes (Hospitalization)
  Sender: FDA-Public Use
  Company Number: NZ-B.I. PHARMACEUTICALS,INC./RIDGEFIELD-2011-AU-00609AU

PATIENT
  Sex: Male

DRUGS (5)
  1. METOPROLOL SUCCINATE [Concomitant]
  2. AUGMENTIN [Concomitant]
     Dosage: 1875 MG
     Dates: start: 20110729, end: 20110730
  3. LISINOPRIL [Concomitant]
     Dosage: 2.5 MG
  4. DIGOXIN [Concomitant]
     Dosage: 250 MCG
  5. PRADAXA [Suspect]
     Indication: ATRIAL FIBRILLATION
     Dosage: 220 MG
     Dates: start: 20110701, end: 20110728

REACTIONS (2)
  - SEPSIS [None]
  - HAEMATURIA [None]
